FAERS Safety Report 15668706 (Version 1)
Quarter: 2018Q4

REPORT INFORMATION
  Report Type: Spontaneous
  Country: US (occurrence: US)
  Receive Date: 20181129
  Receipt Date: 20181129
  Transmission Date: 20190205
  Serious: Yes (Other)
  Sender: FDA-Public Use
  Company Number: US-ROCHE-2219327

PATIENT
  Age: 72 Year
  Sex: Male

DRUGS (1)
  1. OCREVUS [Suspect]
     Active Substance: OCRELIZUMAB
     Indication: MULTIPLE SCLEROSIS
     Dosage: LAST DOSE: 31/MAY/2018
     Route: 065

REACTIONS (2)
  - Urosepsis [Unknown]
  - Sinusitis [Unknown]

NARRATIVE: CASE EVENT DATE: 201805
